FAERS Safety Report 10192960 (Version 1)
Quarter: 2014Q2

REPORT INFORMATION
  Report Type: Spontaneous
  Country: MX (occurrence: MX)
  Receive Date: 20140523
  Receipt Date: 20140523
  Transmission Date: 20141212
  Serious: Yes (Death, Hospitalization)
  Sender: FDA-Public Use
  Company Number: PHHY2013MX119238

PATIENT
  Age: 56 Year
  Sex: Female

DRUGS (2)
  1. ZOMETA [Suspect]
     Indication: OSTEOPOROSIS
     Dosage: 4MG/5ML, MONTHLY
     Route: 042
     Dates: start: 201009
  2. PROZAC [Concomitant]
     Indication: SLEEP DISORDER
     Dosage: UNK UKN, UNK

REACTIONS (3)
  - Metastases to lung [Fatal]
  - Metastases to liver [Fatal]
  - Metastases to pleura [Fatal]
